FAERS Safety Report 8572080-3 (Version None)
Quarter: 2012Q3

REPORT INFORMATION
  Report Type: 
  Country: None (occurrence: None)
  Receive Date: 20120806
  Receipt Date: 20120725
  Transmission Date: 20120928
  Serious: Yes (Hospitalization)
  Sender: FDA-Public Use
  Company Number: US-BAYER-2012-052364

PATIENT
  Age: 25 Year
  Sex: Female

DRUGS (7)
  1. ASMANEX TWISTHALER [Concomitant]
     Dosage: 220 MCG ONE INHALATION NIGHTLY
  2. ALBUTEROL [Concomitant]
     Dosage: AS NEEDED
  3. DROSPIRENONE AND ETHINYL ESTRADIOL [Suspect]
     Dosage: UNK
     Dates: start: 20090713, end: 20100615
  4. SERTRALINE [Concomitant]
     Dosage: 100 MG TABLET ONE DAILY
     Route: 048
  5. ZOLOFT [Concomitant]
     Dosage: 100 MG TABLET ONE DAILY
     Route: 048
  6. YASMIN [Suspect]
  7. XANAX [Concomitant]
     Indication: ANXIETY
     Dosage: 0.25 MG AT BEDTIME AS NEEDED
     Route: 048

REACTIONS (10)
  - PULMONARY EMBOLISM [None]
  - EMOTIONAL DISTRESS [None]
  - PALPITATIONS [None]
  - CHEST PAIN [None]
  - INJURY [None]
  - DYSPNOEA [None]
  - ANHEDONIA [None]
  - PAIN [None]
  - GENERAL PHYSICAL HEALTH DETERIORATION [None]
  - ANXIETY [None]
